FAERS Safety Report 5274000-6 (Version None)
Quarter: 2007Q1

REPORT INFORMATION
  Report Type: 
  Country: None (occurrence: None)
  Receive Date: 20070323
  Receipt Date: 20070313
  Transmission Date: 20070707
  Serious: Yes (Death, Disabling)
  Sender: FDA-Public Use
  Company Number: FR-GLAXOSMITHKLINE-B0461698A

PATIENT
  Sex: Female

DRUGS (2)
  1. COMBIVIR [Suspect]
  2. SUSTIVA [Suspect]
     Dates: end: 20061019

REACTIONS (2)
  - DRUG EXPOSURE DURING PREGNANCY [None]
  - EXOMPHALOS [None]
